FAERS Safety Report 5488519-6 (Version None)
Quarter: 2007Q4

REPORT INFORMATION
  Report Type: 
  Country: None (occurrence: None)
  Receive Date: 20071017
  Receipt Date: 20071007
  Transmission Date: 20080405
  Serious: Yes (Life-Threatening)
  Sender: FDA-Public Use
  Company Number: JO-ELI_LILLY_AND_COMPANY-JO200710002555

PATIENT
  Age: 50 Year
  Sex: Female

DRUGS (2)
  1. DULOXETINE HYDROCHLORIDE [Suspect]
     Dosage: 60 MG, UNKNOWN
     Route: 048
  2. PANADOL [Concomitant]
     Indication: PAIN
     Dosage: UNK, 2/D
     Route: 048

REACTIONS (2)
  - LEUKOPENIA [None]
  - NEUTROPENIA [None]
